FAERS Safety Report 5208331-2 (Version None)
Quarter: 2007Q1

REPORT INFORMATION
  Report Type: 
  Country: None (occurrence: None)
  Receive Date: 20070110
  Receipt Date: 20070110
  Transmission Date: 20070707
  Serious: Yes (Life-Threatening, Hospitalization, Other)
  Sender: FDA-Public Use
  Company Number: None

PATIENT
  Sex: Male
  Weight: 87.5442 kg

DRUGS (4)
  1. LYRICA [Suspect]
     Indication: ADHESION
     Dosage: 1 CAPSULE TWICE A DAY PO
     Route: 048
  2. LYRICA [Suspect]
     Indication: NEURALGIA
     Dosage: 1 CAPSULE TWICE A DAY PO
     Route: 048
  3. PROPOXYPHENE HCL [Suspect]
     Indication: ADHESION
     Dosage: 1 OR 2 TABLETS 3 TIMES DAY PO
     Route: 048
  4. PROPOXYPHENE HCL [Suspect]
     Indication: NEURALGIA
     Dosage: 1 OR 2 TABLETS 3 TIMES DAY PO
     Route: 048

REACTIONS (6)
  - BLOOD PRESSURE DECREASED [None]
  - DIZZINESS [None]
  - FALL [None]
  - LOSS OF CONSCIOUSNESS [None]
  - TREMOR [None]
  - VISION BLURRED [None]
